FAERS Safety Report 7139261-7 (Version None)
Quarter: 2010Q4

REPORT INFORMATION
  Report Type: 
  Country: None (occurrence: None)
  Receive Date: 20101206
  Receipt Date: 20101123
  Transmission Date: 20110411
  Serious: Yes (Other)
  Sender: FDA-Public Use
  Company Number: CA-PURDUE-USA-2010-0054302

PATIENT
  Age: 42 Year
  Sex: Male

DRUGS (2)
  1. TRAMADOL HCL [Suspect]
     Indication: GOUT
     Dosage: 300 MG, QD PRN
     Route: 065
  2. ADVIL LIQUI-GELS [Concomitant]
     Indication: PRODUCT USED FOR UNKNOWN INDICATION
     Route: 065

REACTIONS (4)
  - PROSTATE INFECTION [None]
  - PROSTATIC PAIN [None]
  - PROSTATITIS [None]
  - URETHRAL SYNDROME [None]
